FAERS Safety Report 4305326-8 (Version None)
Quarter: 2004Q1

REPORT INFORMATION
  Report Type: 
  Country: None (occurrence: None)
  Receive Date: 20040226
  Receipt Date: 20030514
  Transmission Date: 20041129
  Serious: No
  Sender: FDA-Public Use
  Company Number: US-BRISTOL-MYERS SQUIBB COMPANY-12277109

PATIENT
  Age: 74 Year
  Sex: Female
  Weight: 98 kg

DRUGS (6)
  1. TAXOL [Suspect]
     Indication: ADENOCARCINOMA
     Dosage: 170 MG WEEKLY FOR 3 WKS, OFF 1 WK
     Route: 042
     Dates: start: 20020612
  2. PERCOCET TABS 5 MG/325 MG [Concomitant]
     Indication: PAIN
     Dates: start: 20020601
  3. LOPRESSOR HCT 50/25 [Concomitant]
     Dates: start: 20020101
  4. ASPIRIN [Concomitant]
  5. MULTI-VITAMIN [Concomitant]
  6. MIRALAX [Concomitant]
     Dates: start: 20030301

REACTIONS (1)
  - NEUROPATHY [None]
